FAERS Safety Report 5378777-0 (Version None)
Quarter: 2007Q3

REPORT INFORMATION
  Report Type: 
  Country: None (occurrence: None)
  Receive Date: 20070705
  Receipt Date: 20070625
  Transmission Date: 20080115
  Serious: Yes (Other)
  Sender: FDA-Public Use
  Company Number: TW-SANOFI-SYNTHELABO-A01200706818

PATIENT
  Age: 39 Year
  Sex: Female

DRUGS (3)
  1. PANTOPRAZOLE SODIUM [Concomitant]
     Indication: DRUG USE FOR UNKNOWN INDICATION
     Route: 042
  2. TRAMADOL HCL [Interacting]
     Indication: ABDOMINAL PAIN
     Route: 042
  3. MEPERIDINE HCL [Suspect]
     Indication: PAIN
     Route: 042

REACTIONS (4)
  - CATATONIA [None]
  - DISORIENTATION [None]
  - DRUG INTERACTION [None]
  - HALLUCINATION, VISUAL [None]
